FAERS Safety Report 4502761-X (Version None)
Quarter: 2004Q4

REPORT INFORMATION
  Report Type: 
  Country: None (occurrence: None)
  Receive Date: 20041116
  Receipt Date: 20041108
  Transmission Date: 20050328
  Serious: Yes (Hospitalization)
  Sender: FDA-Public Use
  Company Number: US-MERCK-0411USA01510

PATIENT
  Age: 69 Year
  Sex: Male

DRUGS (8)
  1. VIOXX [Suspect]
     Indication: PAIN
     Route: 048
     Dates: start: 20010501, end: 20040930
  2. LANOXIN [Concomitant]
     Route: 065
  3. ISOSORBIDE [Concomitant]
     Route: 065
  4. NEXIUM [Concomitant]
     Route: 065
  5. COUMADIN [Concomitant]
     Route: 065
  6. FUROSEMIDE [Concomitant]
     Route: 065
  7. TOPROL-XL [Concomitant]
     Route: 065
  8. [THERAPY UNSPECIFIED] [Concomitant]
     Route: 065

REACTIONS (1)
  - CARDIAC DISORDER [None]
